FAERS Safety Report 8884729 (Version 3)
Quarter: 2013Q1

REPORT INFORMATION
  Report Type: Report from Study
  Country: US (occurrence: US)
  Receive Date: 20121102
  Receipt Date: 20130125
  Transmission Date: 20140127
  Serious: Yes (Other)
  Sender: FDA-Public Use
  Company Number: US-NOVOPROD-362882

PATIENT
  Age: 7 Year
  Sex: Female
  Weight: 17 kg

DRUGS (2)
  1. NORDITROPIN FLEXPRO [Suspect]
     Indication: SMALL FOR DATES BABY
     Dosage: UNK
     Route: 058
     Dates: start: 201101, end: 2011
  2. NORDITROPIN FLEXPRO [Suspect]
     Dosage: UNK
     Dates: start: 201202, end: 201209

REACTIONS (2)
  - Cognitive disorder [Recovered/Resolved]
  - Psychomotor hyperactivity [Recovered/Resolved]
